FAERS Safety Report 9433705 (Version 2)
Quarter: 2013Q3

REPORT INFORMATION
  Report Type: Spontaneous
  Country: PL (occurrence: PL)
  Receive Date: 20130731
  Receipt Date: 20130824
  Transmission Date: 20140515
  Serious: Yes (Life-Threatening, Hospitalization, Other)
  Sender: FDA-Public Use
  Company Number: PL-ROCHE-1251623

PATIENT
  Age: 59 Year
  Sex: Female
  Weight: 40 kg

DRUGS (1)
  1. BONVIVA [Suspect]
     Indication: OSTEOPENIA
     Route: 048
     Dates: start: 20130607

REACTIONS (10)
  - Dehydration [Unknown]
  - Bone decalcification [Unknown]
  - Vomiting [Unknown]
  - Pneumonitis [Unknown]
  - Aphasia [Not Recovered/Not Resolved]
  - General physical health deterioration [Unknown]
  - Burn oesophageal [Unknown]
  - Laryngeal disorder [Unknown]
  - Flatulence [Unknown]
  - Muscle rigidity [Recovered/Resolved]
